FAERS Safety Report 5591638-7 (Version None)
Quarter: 2008Q1

REPORT INFORMATION
  Report Type: 
  Country: None (occurrence: None)
  Receive Date: 20080115
  Receipt Date: 20080103
  Transmission Date: 20080703
  Serious: Yes (Hospitalization)
  Sender: FDA-Public Use
  Company Number: US-ROCHE-539471

PATIENT
  Age: 62 Year
  Sex: Male
  Weight: 73.9 kg

DRUGS (10)
  1. XELODA [Suspect]
     Indication: DRUG USE FOR UNKNOWN INDICATION
     Route: 048
     Dates: start: 20071210, end: 20071224
  2. CARBOPLATIN [Suspect]
     Indication: DRUG USE FOR UNKNOWN INDICATION
     Route: 065
  3. TAXOL [Suspect]
     Indication: DRUG USE FOR UNKNOWN INDICATION
     Route: 065
  4. LOTREL [Concomitant]
     Dosage: DOSAGE 20/10 DAILY
     Route: 048
  5. ATENOLOL [Concomitant]
     Indication: HYPERTENSION
     Dosage: DOSAGE: 50 MG DAILY
     Route: 048
  6. NEXIUM [Concomitant]
     Route: 048
  7. SODIUM [Concomitant]
     Dosage: DOSAGE: 3/300
  8. DULCOLAX [Concomitant]
     Dosage: DOSAGE: AS NEEDED
  9. GLYCERIN [Concomitant]
     Dosage: DOSAGE: AS NEEDED
  10. VITAMINS NOS [Concomitant]
     Dosage: DOSAGE DAILY

REACTIONS (3)
  - INTESTINAL OBSTRUCTION [None]
  - NAUSEA [None]
  - VOMITING [None]
